FAERS Safety Report 15732249 (Version 2)
Quarter: 2021Q1

REPORT INFORMATION
  Report Type: Spontaneous
  Country: GB (occurrence: GB)
  Receive Date: 20181217
  Receipt Date: 20210127
  Transmission Date: 20210419
  Serious: Yes (Hospitalization, Other)
  Sender: FDA-Public Use
  Company Number: GB-MYLANLABS-2018M1093697

PATIENT
  Age: 51 Year
  Sex: Male

DRUGS (5)
  1. CAPECITABINE. [Interacting]
     Active Substance: CAPECITABINE
     Dosage: ADMINISTERED FOR 2 WEEKS OF EVERY 3?WEEK CYCLE, SCHEDULED FOR 4 CYCLES
     Route: 048
  2. DOMPERIDONE [Suspect]
     Active Substance: DOMPERIDONE
     Indication: PROPHYLAXIS OF NAUSEA AND VOMITING
  3. DOMPERIDONE [Suspect]
     Active Substance: DOMPERIDONE
     Indication: ANTIEMETIC SUPPORTIVE CARE
     Dosage: 20 MG, 3X/DAY (GIVEN OVER 5 DAYS AT THE BEGINNING OF EACH CYCLE)
     Route: 065
  4. OXALIPLATIN. [Suspect]
     Active Substance: OXALIPLATIN
     Indication: HEREDITARY NON-POLYPOSIS COLORECTAL CANCER SYNDROME
     Dosage: 130 MG/M2, CYCLIC (ADMINISTERED ON FIRST DAY OF EACH CYCLE)
     Route: 042
  5. CAPECITABINE. [Interacting]
     Active Substance: CAPECITABINE
     Indication: HEREDITARY NON-POLYPOSIS COLORECTAL CANCER SYNDROME
     Dosage: 1000 MG/M2, CYCLIC (TAKEN TWICE DAILY FOR 2 WEEKS)
     Route: 048

REACTIONS (4)
  - Unmasking of previously unidentified disease [Recovered/Resolved]
  - Cardiac arrest [Recovered/Resolved]
  - Drug interaction [Unknown]
  - Long QT syndrome [Recovered/Resolved]
